FAERS Safety Report 4542510-2 (Version None)
Quarter: 2004Q4

REPORT INFORMATION
  Report Type: 
  Country: None (occurrence: None)
  Receive Date: 20041227
  Receipt Date: 20041214
  Transmission Date: 20050328
  Serious: Yes (Other)
  Sender: FDA-Public Use
  Company Number: 2004229765US

PATIENT
  Age: 15 Year
  Sex: Male
  Weight: 33.4 kg

DRUGS (4)
  1. SOMATROPIN POWDER, STERILE (SOMATROPIN) [Suspect]
     Indication: HYPOPITUITARISM
     Dosage: 2 MG (2 MG, QD), SUBCUTANEOUS
     Route: 058
     Dates: start: 20031230, end: 20040717
  2. LEVOTHYROXINE SODIUM [Concomitant]
  3. DESMOPRESSIN (DESMOPRESSIN) [Concomitant]
  4. HYDROCORTISONE ACETATE (HYDROCORTISONE ACETATE) [Concomitant]

REACTIONS (3)
  - ASTROCYTOMA [None]
  - HEADACHE [None]
  - NEOPLASM RECURRENCE [None]
